FAERS Safety Report 4433466-1 (Version None)
Quarter: 2004Q3

REPORT INFORMATION
  Report Type: 
  Country: None (occurrence: None)
  Receive Date: 20040824
  Receipt Date: 20040809
  Transmission Date: 20050211
  Serious: Yes (Life-Threatening, Hospitalization)
  Sender: FDA-Public Use
  Company Number: S04-GER-00153-01

PATIENT
  Age: 40 Year
  Sex: Female

DRUGS (5)
  1. CITALOPRAM HYDROBROMIDE [Suspect]
     Indication: DEPRESSIVE SYMPTOM
     Dosage: 40 MG QD PO
     Route: 048
     Dates: start: 20031218, end: 20040103
  2. CLOZAPINE [Suspect]
     Indication: SCHIZOPHRENIA, PARANOID TYPE
     Dosage: 450 MG QD PO
     Route: 048
     Dates: start: 20031125, end: 20040103
  3. OLANZAPINE [Concomitant]
  4. CLOZAPINE [Concomitant]
  5. RISPERIDONE [Concomitant]

REACTIONS (10)
  - AGRANULOCYTOSIS [None]
  - ANXIETY [None]
  - COUGH [None]
  - DELUSION [None]
  - DENTAL CARIES [None]
  - DEPRESSION [None]
  - DRUG EFFECT DECREASED [None]
  - LEUKOPENIA [None]
  - PYREXIA [None]
  - WEIGHT INCREASED [None]
